FAERS Safety Report 8451625-8 (Version None)
Quarter: 2012Q2

REPORT INFORMATION
  Report Type: 
  Country: None (occurrence: None)
  Receive Date: 20120620
  Receipt Date: 20120412
  Transmission Date: 20120825
  Serious: No
  Sender: FDA-Public Use
  Company Number: US-VERTEX PHARMACEUTICALS INC.-AE-2012-003466

PATIENT
  Sex: Female
  Weight: 80.358 kg

DRUGS (4)
  1. RIBAVIRIN [Concomitant]
     Indication: HEPATITIS C
     Route: 048
     Dates: start: 20120124
  2. INCIVEK [Suspect]
     Indication: HEPATITIS C
     Route: 048
     Dates: start: 20120124
  3. PEGASYS [Concomitant]
     Indication: HEPATITIS C
     Route: 058
     Dates: start: 20120124
  4. SYMBICORT [Concomitant]
     Indication: ASTHMA

REACTIONS (5)
  - HEADACHE [None]
  - ANORECTAL DISCOMFORT [None]
  - FATIGUE [None]
  - HAEMORRHOIDAL HAEMORRHAGE [None]
  - RASH [None]
